FAERS Safety Report 6091467-4 (Version None)
Quarter: 2009Q1

REPORT INFORMATION
  Report Type: 
  Country: None (occurrence: None)
  Receive Date: 20090219
  Receipt Date: 20090219
  Transmission Date: 20090719
  Serious: Yes (Hospitalization)
  Sender: FDA-Public Use
  Company Number: None

PATIENT
  Age: 46 Year
  Sex: Female

DRUGS (17)
  1. ALLOPURINOL [Suspect]
     Indication: DRUG RASH WITH EOSINOPHILIA AND SYSTEMIC SYMPTOMS
     Dosage: PO
     Route: 048
     Dates: start: 20081107, end: 20081204
  2. ASPIRIN [Concomitant]
  3. BETAMETHASONE [Concomitant]
  4. CONJUGATED ESTROGENS [Concomitant]
  5. MEDROXYPROGESTERONE [Concomitant]
  6. MULTIVITAMINE [Concomitant]
  7. DIPHENHYDRAMINE HCL [Concomitant]
  8. ESOMEPRAZOLE [Concomitant]
  9. EZETEMIBE [Concomitant]
  10. SIMVASTATIN [Concomitant]
  11. FERROUS SULFATE TAB [Concomitant]
  12. FUROSEMIDE [Concomitant]
  13. INDOMETHACIN [Concomitant]
  14. INSULIN [Concomitant]
  15. INSULIN [Concomitant]
  16. LOSARTAN [Concomitant]
  17. EPOETIN ALPHA [Concomitant]

REACTIONS (4)
  - DRUG INEFFECTIVE [None]
  - EOSINOPHILIA [None]
  - RASH GENERALISED [None]
  - RASH PRURITIC [None]
